FAERS Safety Report 19901586 (Version 1)
Quarter: 2021Q3

REPORT INFORMATION
  Report Type: Spontaneous
  Country: US (occurrence: US)
  Receive Date: 20210930
  Receipt Date: 20210930
  Transmission Date: 20211014
  Serious: No
  Sender: FDA-Public Use
  Company Number: US-ELI_LILLY_AND_COMPANY-US202109008574

PATIENT
  Sex: Female

DRUGS (4)
  1. EMGALITY [Suspect]
     Active Substance: GALCANEZUMAB-GNLM
     Indication: PRODUCT USED FOR UNKNOWN INDICATION
     Dosage: 240 MG, SINGLE(LOADING DOSE)
     Route: 065
     Dates: start: 202108
  2. EXCEDRIN [ACETYLSALICYLIC ACID;CAFFEINE;PARAC [Concomitant]
     Indication: MIGRAINE
  3. EMGALITY [Suspect]
     Active Substance: GALCANEZUMAB-GNLM
     Dosage: 120 MG, UNKNOWN
     Route: 065
     Dates: start: 20210920
  4. UBRELVY [Concomitant]
     Active Substance: UBROGEPANT
     Indication: MIGRAINE

REACTIONS (10)
  - Back pain [Unknown]
  - Drug ineffective [Unknown]
  - Pruritus [Unknown]
  - Feeling abnormal [Unknown]
  - Constipation [Unknown]
  - Migraine [Unknown]
  - Depressed mood [Unknown]
  - Menstruation delayed [Unknown]
  - Fatigue [Unknown]
  - Injection site dryness [Unknown]

NARRATIVE: CASE EVENT DATE: 20210920
